FAERS Safety Report 6150805-4 (Version None)
Quarter: 2009Q2

REPORT INFORMATION
  Report Type: 
  Country: None (occurrence: None)
  Receive Date: 20090409
  Receipt Date: 20090401
  Transmission Date: 20091009
  Serious: Yes (Hospitalization)
  Sender: FDA-Public Use
  Company Number: US-MERCK-0904USA00154

PATIENT
  Age: 7 Year
  Sex: Male

DRUGS (5)
  1. SINGULAIR [Suspect]
     Indication: ASTHMA
     Route: 048
     Dates: start: 20081101, end: 20090301
  2. SINGULAIR [Suspect]
     Route: 048
     Dates: start: 20090301
  3. SYMBICORT [Concomitant]
     Route: 065
  4. ALBUTEROL [Concomitant]
     Route: 065
  5. FLOVENT [Concomitant]
     Route: 065

REACTIONS (9)
  - ABNORMAL BEHAVIOUR [None]
  - ASTHMA [None]
  - EAR INFECTION [None]
  - HEADACHE [None]
  - OVERDOSE [None]
  - PNEUMONIA BACTERIAL [None]
  - RHINITIS ALLERGIC [None]
  - SINUSITIS [None]
  - WRONG TECHNIQUE IN DRUG USAGE PROCESS [None]
